FAERS Safety Report 12998372 (Version 1)
Quarter: 2016Q4

REPORT INFORMATION
  Report Type: Spontaneous
  Country: US (occurrence: US)
  Receive Date: 20161205
  Receipt Date: 20161205
  Transmission Date: 20170207
  Serious: Yes (Disabling)
  Sender: FDA-Public Use
  Company Number: None

PATIENT
  Age: 62 Year
  Sex: Male

DRUGS (6)
  1. ATIVAN [Concomitant]
     Active Substance: LORAZEPAM
  2. KLONOPIN [Concomitant]
     Active Substance: CLONAZEPAM
  3. ONFI [Suspect]
     Active Substance: CLOBAZAM
     Indication: SEIZURE
     Dosage: ?          QUANTITY:F PML 53M JAMS;?I PILL 8 AM ?
     Route: 048
     Dates: start: 20080819
  4. LAMICTAL [Concomitant]
     Active Substance: LAMOTRIGINE
  5. PROPRANOLOL [Concomitant]
     Active Substance: PROPRANOLOL\PROPRANOLOL HYDROCHLORIDE
  6. CARBATROL [Concomitant]
     Active Substance: CARBAMAZEPINE

REACTIONS (2)
  - Balance disorder [None]
  - Delusion [None]

NARRATIVE: CASE EVENT DATE: 20080819
